FAERS Safety Report 19789224 (Version 1)
Quarter: 2021Q3

REPORT INFORMATION
  Report Type: Spontaneous
  Country: CA (occurrence: CA)
  Receive Date: 20210905
  Receipt Date: 20210905
  Transmission Date: 20211014
  Serious: Yes (Life-Threatening, Hospitalization)
  Sender: FDA-Public Use
  Company Number: CA-TEVA-2021-CA-1948402

PATIENT
  Age: 63 Year
  Sex: Male
  Weight: 89 kg

DRUGS (18)
  1. MULTIVITAMINE(S) [Concomitant]
     Active Substance: VITAMINS
  2. ASA [Concomitant]
     Active Substance: ASPIRIN
  3. DUTASTERIDE. [Concomitant]
     Active Substance: DUTASTERIDE
  4. CIPROFLOXACIN. [Concomitant]
     Active Substance: CIPROFLOXACIN
  5. VITAMIN B12 [Concomitant]
     Active Substance: CYANOCOBALAMIN
  6. CISPLATIN INJECTION [Suspect]
     Active Substance: CISPLATIN
     Dosage: ONCE
     Route: 042
  7. CYTARABINE INJECTION [Suspect]
     Active Substance: CYTARABINE
     Dosage: ONCE
     Route: 042
  8. EMOLAX [Concomitant]
  9. EZETIMIBE. [Concomitant]
     Active Substance: EZETIMIBE
  10. GRASTOFIL SINGLE USE PRE?FILLED SYRINGE [Concomitant]
     Active Substance: FILGRASTIM
  11. DEXAMETHASONE. [Suspect]
     Active Substance: DEXAMETHASONE
     Dosage: 40 MILLIGRAM DAILY;
     Route: 042
  12. SENNA [Concomitant]
     Active Substance: SENNA LEAF\SENNOSIDES\SENNOSIDES A AND B
  13. RITUXAN SC SINGLE DOSE VIAL ? 120 MG/ML [Suspect]
     Active Substance: RITUXIMAB
     Dosage: ONCE
     Route: 058
  14. LEVETIRACETAM. [Concomitant]
     Active Substance: LEVETIRACETAM
  15. METOPROLOL. [Concomitant]
     Active Substance: METOPROLOL
  16. PRAVASTATIN SODIUM. [Concomitant]
     Active Substance: PRAVASTATIN SODIUM
  17. QUETIAPINE. [Concomitant]
     Active Substance: QUETIAPINE
  18. VALACYCLOVIR [Concomitant]
     Active Substance: VALACYCLOVIR HYDROCHLORIDE

REACTIONS (1)
  - Febrile neutropenia [Recovering/Resolving]
